FAERS Safety Report 4474388-X (Version None)
Quarter: 2004Q4

REPORT INFORMATION
  Report Type: 
  Country: None (occurrence: None)
  Receive Date: 20041014
  Receipt Date: 20041006
  Transmission Date: 20050328
  Serious: Yes (Other)
  Sender: FDA-Public Use
  Company Number: US-MERCK-0410USA00920

PATIENT
  Sex: Female

DRUGS (5)
  1. COREG [Concomitant]
     Route: 065
  2. NITROGLYCERIN [Concomitant]
     Route: 065
  3. BENICAR [Concomitant]
     Route: 065
  4. ACTOS [Concomitant]
     Route: 065
  5. VIOXX [Suspect]
     Indication: ARTHRITIS
     Route: 048
     Dates: start: 19990101, end: 20040930

REACTIONS (2)
  - CEREBROVASCULAR ACCIDENT [None]
  - POOR PERIPHERAL CIRCULATION [None]
